FAERS Safety Report 7990749-6 (Version None)
Quarter: 2011Q4

REPORT INFORMATION
  Report Type: 
  Country: None (occurrence: None)
  Receive Date: 20111219
  Receipt Date: 20111219
  Transmission Date: 20120403
  Serious: No
  Sender: FDA-Public Use
  Company Number: None

PATIENT
  Age: 53 Year
  Sex: Female
  Weight: 68.038 kg

DRUGS (2)
  1. CRESTOR [Suspect]
     Indication: BLOOD CHOLESTEROL INCREASED
     Dosage: ONE PILL
  2. CO Q 10 [Concomitant]

REACTIONS (3)
  - MUSCULAR WEAKNESS [None]
  - PELVIC PAIN [None]
  - PAIN IN EXTREMITY [None]
